FAERS Safety Report 10753519 (Version 1)
Quarter: 2015Q1

REPORT INFORMATION
  Report Type: Spontaneous
  Country: US (occurrence: None)
  Receive Date: 20150129
  Receipt Date: 20150129
  Transmission Date: 20150721
  Serious: Yes (Other)
  Sender: FDA-Public Use
  Company Number: 2015-US-000972

PATIENT
  Sex: Female
  Weight: 86.6 kg

DRUGS (3)
  1. NUVIGIL [Concomitant]
     Active Substance: ARMODAFINIL
  2. XYREM [Suspect]
     Active Substance: SODIUM OXYBATE
     Indication: NARCOLEPSY
     Route: 048
     Dates: start: 201312, end: 201312
  3. XYREM [Suspect]
     Active Substance: SODIUM OXYBATE
     Indication: CATAPLEXY
     Route: 048
     Dates: start: 201312, end: 201312

REACTIONS (6)
  - Terminal insomnia [None]
  - Affective disorder [None]
  - Somnambulism [None]
  - Fall [None]
  - Asthma [None]
  - Ankle fracture [None]

NARRATIVE: CASE EVENT DATE: 2014
